FAERS Safety Report 20532902 (Version 4)
Quarter: 2022Q3

REPORT INFORMATION
  Report Type: Spontaneous
  Country: CA (occurrence: CA)
  Receive Date: 20220301
  Receipt Date: 20220927
  Transmission Date: 20221026
  Serious: Yes (Other)
  Sender: FDA-Public Use
  Company Number: CA-PFIZER INC-202200296662

PATIENT
  Age: 9 Year
  Sex: Female

DRUGS (8)
  1. SOMATROPIN [Suspect]
     Active Substance: SOMATROPIN
     Indication: Turner^s syndrome
     Dosage: 6 TIMES A WEEKS (DISCONTINUED)
     Route: 058
     Dates: start: 201804
  2. SOMATROPIN [Suspect]
     Active Substance: SOMATROPIN
     Dosage: 6 TIMES A WEEKS
     Route: 058
  3. SOMATROPIN [Suspect]
     Active Substance: SOMATROPIN
     Dosage: 6 DAYS A WEEK
     Route: 058
  4. SOMATROPIN [Suspect]
     Active Substance: SOMATROPIN
     Dosage: EVERY 6 WEEK
     Route: 058
     Dates: start: 2022
  5. SOMATROPIN [Suspect]
     Active Substance: SOMATROPIN
     Dosage: EVERY 6 WEEK
     Route: 058
     Dates: start: 2022
  6. CHOLECALCIFEROL [Concomitant]
     Active Substance: CHOLECALCIFEROL
     Dosage: UNK
  7. VITAMIN D3 [Concomitant]
     Active Substance: CHOLECALCIFEROL
     Dosage: 800 ML, DAILY, 400 UNIT/ML
     Route: 048
  8. SYNTHROID [Concomitant]
     Active Substance: LEVOTHYROXINE SODIUM
     Indication: Hypothyroidism
     Dosage: 37.5 UG, DAILY
     Route: 048

REACTIONS (5)
  - Fall [Unknown]
  - Humerus fracture [Unknown]
  - Primary hypothyroidism [Not Recovered/Not Resolved]
  - Product dispensing error [Unknown]
  - Constipation [Recovered/Resolved]

NARRATIVE: CASE EVENT DATE: 20211101
